FAERS Safety Report 9278980 (Version 1)
Quarter: 2013Q2

REPORT INFORMATION
  Report Type: Spontaneous
  Country: US (occurrence: None)
  Receive Date: 20130503
  Receipt Date: 20130503
  Transmission Date: 20140414
  Serious: Yes (Death)
  Sender: FDA-Public Use
  Company Number: SYM-2013-03418

PATIENT
  Age: 72 Year
  Sex: Male

DRUGS (2)
  1. XENAZINE [Suspect]
     Indication: CHOREA
     Route: 048
     Dates: start: 29120228, end: 20130325
  2. XENAZINE [Suspect]
     Indication: CHOREA
     Route: 048
     Dates: start: 29120228, end: 20130325

REACTIONS (1)
  - Death [None]
